FAERS Safety Report 8863383 (Version 2)
Quarter: 2013Q2

REPORT INFORMATION
  Report Type: Spontaneous
  Country: CA (occurrence: CA)
  Receive Date: 20121024
  Receipt Date: 20130410
  Transmission Date: 20140414
  Serious: No
  Sender: FDA-Public Use
  Company Number: CA-B.I. PHARMACEUTICALS,INC./RIDGEFIELD-2012-BP-25983BP

PATIENT
  Age: 59 Year
  Sex: Female
  Weight: 104.33 kg

DRUGS (1)
  1. MIRAPEX [Suspect]
     Indication: RESTLESS LEGS SYNDROME
     Dosage: 0.25 MG
     Dates: start: 19990820

REACTIONS (2)
  - Serum ferritin decreased [Recovered/Resolved]
  - Hyperphagia [Unknown]
